FAERS Safety Report 12772702 (Version 1)
Quarter: 2016Q3

REPORT INFORMATION
  Report Type: Spontaneous
  Country: SE (occurrence: SE)
  Receive Date: 20160922
  Receipt Date: 20160922
  Transmission Date: 20161109
  Serious: Yes (Hospitalization)
  Sender: FDA-Public Use
  Company Number: SE-JNJFOC-20160919651

PATIENT
  Age: 40 Year
  Sex: Female

DRUGS (3)
  1. CONCERTA [Suspect]
     Active Substance: METHYLPHENIDATE HYDROCHLORIDE
     Indication: ATTENTION DEFICIT/HYPERACTIVITY DISORDER
     Route: 048
  2. XANOR [Concomitant]
     Active Substance: ALPRAZOLAM
     Indication: ATTENTION DEFICIT/HYPERACTIVITY DISORDER
     Route: 065
  3. STILNOCT [Concomitant]
     Active Substance: ZOLPIDEM TARTRATE
     Indication: ATTENTION DEFICIT/HYPERACTIVITY DISORDER
     Route: 065

REACTIONS (2)
  - Prescribed overdose [Unknown]
  - Seizure [Unknown]

NARRATIVE: CASE EVENT DATE: 20160729
